FAERS Safety Report 23588294 (Version 2)
Quarter: 2024Q2

REPORT INFORMATION
  Report Type: Spontaneous
  Country: US (occurrence: US)
  Receive Date: 20240302
  Receipt Date: 20240402
  Transmission Date: 20240715
  Serious: Yes (Hospitalization)
  Sender: FDA-Public Use
  Company Number: US-UCBSA-2024009658

PATIENT
  Age: 15 Year
  Sex: Male
  Weight: 87.5 kg

DRUGS (5)
  1. FINTEPLA [Interacting]
     Active Substance: FENFLURAMINE
     Indication: Atonic seizures
     Dosage: 3 MILLILITER, 2X/DAY (BID)
     Route: 048
     Dates: start: 20231219, end: 20231229
  2. FINTEPLA [Interacting]
     Active Substance: FENFLURAMINE
     Indication: Off label use
     Dosage: 1 MILLILITER OR 1.5 MILLILITER, 2X/DAY (BID)
     Route: 048
     Dates: start: 20231230
  3. VALPROIC ACID [Interacting]
     Active Substance: VALPROIC ACID
     Indication: Seizure
     Dosage: 500MG/500MG/1000MG
     Route: 048
     Dates: start: 20220929
  4. EPIDIOLEX [Concomitant]
     Active Substance: CANNABIDIOL
     Indication: Product used for unknown indication
     Dosage: UNK
  5. CLOBAZAM [Concomitant]
     Active Substance: CLOBAZAM
     Indication: Seizure
     Dosage: 10 MG AM AND 15 MG PM
     Route: 048
     Dates: start: 20221007

REACTIONS (9)
  - Alanine aminotransferase increased [Recovered/Resolved]
  - Aspartate aminotransferase increased [Recovered/Resolved]
  - Somnolence [Recovered/Resolved]
  - Ataxia [Recovered/Resolved]
  - Ammonia increased [Unknown]
  - Anticonvulsant drug level increased [Unknown]
  - Mental status changes [Unknown]
  - Drug interaction [Unknown]
  - Off label use [Unknown]

NARRATIVE: CASE EVENT DATE: 20231201
